FAERS Safety Report 23327293 (Version 2)
Quarter: 2024Q1

REPORT INFORMATION
  Report Type: Report from Study
  Country: CA (occurrence: CA)
  Receive Date: 20231221
  Receipt Date: 20240123
  Transmission Date: 20240409
  Serious: Yes (Hospitalization, Other)
  Sender: FDA-Public Use
  Company Number: CA-002147023-NVSC2022CA227926

PATIENT
  Age: 61 Year
  Sex: Female

DRUGS (1)
  1. HYRIMOZ [Suspect]
     Active Substance: ADALIMUMAB-ADAZ
     Indication: Psoriasis
     Dosage: 40 MG,EVERY 2 WEEKS
     Route: 058
     Dates: start: 20220604, end: 20240118

REACTIONS (12)
  - Hepatic ischaemia [Unknown]
  - Neoplasm malignant [Unknown]
  - Psoriasis [Unknown]
  - Injection site pain [Unknown]
  - Product use issue [Unknown]
  - Product dose omission issue [Unknown]
  - Psoriasis [Unknown]
  - Myalgia [Unknown]
  - Arthralgia [Unknown]
  - Pruritus [Unknown]
  - Insomnia [Unknown]
  - Injection site pain [Unknown]

NARRATIVE: CASE EVENT DATE: 20221005
